FAERS Safety Report 12926526 (Version 2)
Quarter: 2016Q4

REPORT INFORMATION
  Report Type: Report from Study
  Country: US (occurrence: US)
  Receive Date: 20161109
  Receipt Date: 20161128
  Transmission Date: 20170207
  Serious: No
  Sender: FDA-Public Use
  Company Number: US-PFIZER INC-2016445181

PATIENT
  Age: 24 Year
  Sex: Female
  Weight: 51 kg

DRUGS (7)
  1. MORPHINE [Concomitant]
     Active Substance: MORPHINE
     Dosage: UNK
  2. TYLENOL [Concomitant]
     Active Substance: ACETAMINOPHEN
     Dosage: UNK
  3. SUTENT [Suspect]
     Active Substance: SUNITINIB MALATE
     Dosage: 37.5 MG, DAILY (DAILY AS PRESCRIBED)
     Route: 048
     Dates: start: 20160929
  4. GUAIFENESIN. [Concomitant]
     Active Substance: GUAIFENESIN
     Dosage: UNK
  5. SUTENT [Suspect]
     Active Substance: SUNITINIB MALATE
     Indication: PARAGANGLION NEOPLASM
     Dosage: 37.5 MG, DAILY
     Route: 048
     Dates: start: 20160929
  6. IBUPROFEN. [Concomitant]
     Active Substance: IBUPROFEN
     Dosage: UNK
  7. AMLODIPINE [Concomitant]
     Active Substance: AMLODIPINE BESYLATE
     Dosage: UNK

REACTIONS (8)
  - Blood pressure increased [Unknown]
  - Nausea [Unknown]
  - Oral pain [Unknown]
  - Vomiting [Unknown]
  - Product use issue [Unknown]
  - Skin discolouration [Unknown]
  - Dysgeusia [Unknown]
  - Headache [Unknown]
